FAERS Safety Report 20955806 (Version 1)
Quarter: 2022Q2

REPORT INFORMATION
  Report Type: Spontaneous
  Country: NL (occurrence: NL)
  Receive Date: 20220614
  Receipt Date: 20220614
  Transmission Date: 20220720
  Serious: Yes (Other)
  Sender: FDA-Public Use
  Company Number: None

PATIENT
  Sex: Male
  Weight: 78 kg

DRUGS (6)
  1. TRAMADOL [Suspect]
     Active Substance: TRAMADOL
     Indication: Back pain
     Dosage: 50 MILLIGRAM,2 TO 3 PER DAY
     Dates: start: 20220117
  2. TRAMADOL [Suspect]
     Active Substance: TRAMADOL
     Indication: Neck pain
  3. TEMAZEPAM [Concomitant]
     Active Substance: TEMAZEPAM
     Dosage: 10 MILLIGRAM (CAPSULE, 10 MG (MILLIGRAM))
  4. METHYLPHENIDATE [Concomitant]
     Active Substance: METHYLPHENIDATE
     Dosage: 10 MILLIGRAM (TABLET, 10 MG (MILLIGRAM))
  5. OXAZEPAM [Concomitant]
     Active Substance: OXAZEPAM
     Dosage: 10 MILLIGRAM (TABLET, 10 MG (MILLIGRAM))
  6. ZOPICLONE [Concomitant]
     Active Substance: ZOPICLONE
     Dosage: 7.5 MILLIGRAM

REACTIONS (7)
  - Urinary retention [Unknown]
  - Abdominal pain [Unknown]
  - Paraesthesia [Not Recovered/Not Resolved]
  - Pruritus [Unknown]
  - Constipation [Unknown]
  - Dizziness [Recovered/Resolved]
  - Nausea [Recovered/Resolved]
